FAERS Safety Report 21902761 (Version 9)
Quarter: 2023Q2

REPORT INFORMATION
  Report Type: Report from Study
  Country: BR (occurrence: BR)
  Receive Date: 20230124
  Receipt Date: 20230623
  Transmission Date: 20230722
  Serious: Yes (Life-Threatening, Hospitalization, Other)
  Sender: FDA-Public Use
  Company Number: BR-002147023-NVSC2022BR301592

PATIENT
  Age: 60 Year
  Sex: Female
  Weight: 70 kg

DRUGS (9)
  1. KISQALI [Suspect]
     Active Substance: RIBOCICLIB
     Indication: Breast cancer
     Dosage: UNK
     Route: 065
     Dates: end: 20230103
  2. KISQALI [Suspect]
     Active Substance: RIBOCICLIB
     Dosage: 600 MG (3 TABLETS ) FOR 21 DAYS AND PAUSE FOR 7 DAYS (INTERRUPTED THE SECOND CYCLE DUE TO BLOOD TEST
     Route: 048
     Dates: start: 20221121, end: 20230103
  3. KISQALI [Suspect]
     Active Substance: RIBOCICLIB
     Dosage: 3 DOSAGE FORM (3 TABLETS)
     Route: 065
  4. KISQALI [Suspect]
     Active Substance: RIBOCICLIB
     Dosage: 2 DOSAGE FORM, QD (2 TABLETS)
     Route: 065
  5. KISQALI [Suspect]
     Active Substance: RIBOCICLIB
     Dosage: 3 DOSAGE FORM, QD
     Route: 065
  6. KISQALI [Suspect]
     Active Substance: RIBOCICLIB
     Dosage: 1 DOSAGE FORM, QD
     Route: 065
     Dates: start: 20230608
  7. ANAYA [Concomitant]
     Indication: Breast cancer
     Dosage: 1 DOSAGE FORM, QD (1 TABLET IN THE MORNING)
     Route: 048
     Dates: start: 20221109
  8. MORPHINE [Concomitant]
     Active Substance: MORPHINE
     Indication: Back pain
     Dosage: 1 DOSAGE FORM, Q4H (1 TABLET EVERY 4 HOURS)
     Route: 048
     Dates: start: 20221109
  9. CALCIUM\VITAMIN D [Concomitant]
     Active Substance: CALCIUM\VITAMIN D
     Indication: Supplementation therapy
     Dosage: 1 DOSAGE FORM, Q12H (1 TABLET EVERY 12 HOURS)
     Route: 048
     Dates: start: 20221109

REACTIONS (26)
  - Platelet count decreased [Unknown]
  - White blood cell count decreased [Unknown]
  - Blood calcium decreased [Unknown]
  - Respiratory disorder [Unknown]
  - Cough [Recovering/Resolving]
  - Dyspnoea [Recovering/Resolving]
  - Pneumonia [Unknown]
  - Vomiting [Recovered/Resolved]
  - Haemoglobin decreased [Unknown]
  - Diarrhoea [Recovering/Resolving]
  - Nausea [Recovering/Resolving]
  - Decreased appetite [Recovering/Resolving]
  - Dyspepsia [Recovering/Resolving]
  - Retching [Recovered/Resolved]
  - Renal function test abnormal [Recovering/Resolving]
  - Malaise [Unknown]
  - PCO2 abnormal [Unknown]
  - Blood potassium abnormal [Unknown]
  - Blood sodium decreased [Unknown]
  - Lactose intolerance [Unknown]
  - Haematocrit decreased [Unknown]
  - Blood magnesium decreased [Unknown]
  - Decreased immune responsiveness [Recovered/Resolved]
  - Visual impairment [Unknown]
  - Blood creatinine increased [Unknown]
  - Vomiting [Unknown]

NARRATIVE: CASE EVENT DATE: 20221226
